FAERS Safety Report 4382933-8 (Version None)
Quarter: 2004Q2

REPORT INFORMATION
  Report Type: 
  Country: None (occurrence: None)
  Receive Date: 20040622
  Receipt Date: 20040617
  Transmission Date: 20050107
  Serious: Yes (Other)
  Sender: FDA-Public Use
  Company Number: NL-MERCK-0406NLD00013

PATIENT
  Age: 8 Year
  Sex: Male

DRUGS (5)
  1. FLUTICASONE PROPIONATE AND SALMETEROL XINAFOATE [Concomitant]
     Route: 055
  2. METHYLPHENIDATE HYDROCHLORIDE [Concomitant]
     Route: 047
  3. SINGULAIR [Suspect]
     Indication: ASTHMA
     Route: 048
  4. SINGULAIR [Suspect]
     Route: 048
  5. PETROLATUM, WHITE [Concomitant]
     Route: 061

REACTIONS (2)
  - AGGRESSION [None]
  - ATTENTION DEFICIT/HYPERACTIVITY DISORDER [None]
